FAERS Safety Report 8238216-9 (Version None)
Quarter: 2012Q1

REPORT INFORMATION
  Report Type: 
  Country: None (occurrence: None)
  Receive Date: 20120327
  Receipt Date: 20120313
  Transmission Date: 20120608
  Serious: Yes (Death)
  Sender: FDA-Public Use
  Company Number: JP-MYLANLABS-2012S1005809

PATIENT
  Age: 75 Year
  Sex: Male

DRUGS (25)
  1. METHOTREXATE [Suspect]
     Indication: RHEUMATOID ARTHRITIS
     Dosage: 10 MG/WEEK
     Route: 065
     Dates: end: 20090201
  2. PREDNISOLONE [Suspect]
     Indication: PNEUMONIA ASPIRATION
     Dosage: 5 MG/DAY; INCREASED TO 30 MG/DAY IN FEB 2009
     Route: 065
  3. PREDNISOLONE [Suspect]
     Dosage: 40 MG/DAY
     Route: 065
  4. ALBUMIN (HUMAN) [Concomitant]
     Indication: HYPOALBUMINAEMIA
     Route: 065
  5. FUROSEMIDE [Concomitant]
     Route: 065
  6. PREDNISOLONE [Suspect]
     Dosage: 30 MG/DAY; REDUCED TO 25 MG/DAY AFTER ADMISSION
     Route: 065
  7. PREDNISOLONE [Suspect]
     Dosage: 30 MG/DAY; REDUCED TO 25 MG/DAY AFTER ADMISSION
     Route: 065
  8. PENTAMIDINE [Concomitant]
     Route: 041
  9. PREDNISOLONE [Suspect]
     Indication: ORGANISING PNEUMONIA
     Dosage: 5 MG/DAY; INCREASED TO 30 MG/DAY IN FEB 2009
     Route: 065
  10. PREDNISOLONE [Suspect]
     Dosage: 40 MG/DAY
     Route: 065
  11. PREDNISOLONE [Suspect]
     Dosage: 40 MG/DAY
     Route: 065
  12. MICAFUNGIN [Suspect]
     Indication: CRYPTOSPORIDIOSIS INFECTION
     Dosage: 150 MG/DAY; LATER INCREASED TO 300 MG/DAY
     Route: 065
  13. MICAFUNGIN [Suspect]
     Dosage: 300 MG/DAY
     Route: 065
  14. PREDNISOLONE [Suspect]
     Indication: RHEUMATOID ARTHRITIS
     Dosage: 5 MG/DAY; INCREASED TO 30 MG/DAY IN FEB 2009
     Route: 065
  15. PREDNISOLONE [Suspect]
     Dosage: 30 MG/DAY; REDUCED TO 25 MG/DAY AFTER ADMISSION
     Route: 065
  16. PREDNISOLONE [Suspect]
     Dosage: 25 MG/DAY; THEN INCREASED TO 40 MG/DAY
  17. PREDNISOLONE [Suspect]
     Dosage: 25 MG/DAY; THEN INCREASED TO 40 MG/DAY
  18. PREDNISOLONE [Suspect]
     Dosage: 30 MG/DAY; REDUCED TO 25 MG/DAY AFTER ADMISSION
     Route: 065
  19. MEROPENEM [Suspect]
     Indication: PNEUMONIA ASPIRATION
     Dosage: 0.5G X 2
     Route: 065
  20. PREDNISOLONE [Suspect]
     Dosage: 25 MG/DAY; THEN INCREASED TO 40 MG/DAY
  21. PREDNISOLONE [Suspect]
     Dosage: 40 MG/DAY
     Route: 065
  22. CIPROFLOXACIN [Suspect]
     Indication: PNEUMONIA ASPIRATION
     Dosage: 300MG X 2
     Route: 065
  23. PREDNISOLONE [Suspect]
     Indication: BRONCHITIS
     Dosage: 5 MG/DAY; INCREASED TO 30 MG/DAY IN FEB 2009
     Route: 065
  24. PREDNISOLONE [Suspect]
     Dosage: 25 MG/DAY; THEN INCREASED TO 40 MG/DAY
  25. DUOCID                             /00892601/ [Suspect]
     Indication: BRONCHITIS
     Route: 065

REACTIONS (2)
  - TRICHOSPORON INFECTION [None]
  - RESPIRATORY FAILURE [None]
